FAERS Safety Report 4284353-3 (Version None)
Quarter: 2004Q1

REPORT INFORMATION
  Report Type: 
  Country: None (occurrence: None)
  Receive Date: 20040130
  Receipt Date: 20040130
  Transmission Date: 20041129
  Serious: Yes (Hospitalization)
  Sender: FDA-Public Use
  Company Number: None

PATIENT
  Age: 71 Year
  Sex: Male
  Weight: 104.3273 kg

DRUGS (6)
  1. ASPIRIN [Suspect]
     Dosage: 1 PO QD
     Route: 048
  2. DILTIAZEM [Concomitant]
  3. FOSINOPRIL SODIUM [Concomitant]
  4. METFORMIN HCL [Concomitant]
  5. RABEPRAZOLE SODIUM [Concomitant]
  6. GLYBURIDE [Concomitant]

REACTIONS (4)
  - ASTHENIA [None]
  - DIZZINESS [None]
  - FAECES DISCOLOURED [None]
  - GASTRIC LAVAGE ABNORMAL [None]
